FAERS Safety Report 17716708 (Version 2)
Quarter: 2020Q2

REPORT INFORMATION
  Report Type: Spontaneous
  Country: US (occurrence: US)
  Receive Date: 20200428
  Receipt Date: 20200518
  Transmission Date: 20200714
  Serious: No
  Sender: FDA-Public Use
  Company Number: US-ASTRAZENECA-2020SE55586

PATIENT
  Age: 68 Year
  Sex: Male
  Weight: 83.9 kg

DRUGS (4)
  1. VENTOLIN [Concomitant]
     Active Substance: ALBUTEROL SULFATE
     Indication: DYSPNOEA
     Dosage: AS REQUIRED
     Route: 055
     Dates: start: 202001
  2. SYMBICORT [Suspect]
     Active Substance: BUDESONIDE\FORMOTEROL FUMARATE DIHYDRATE
     Indication: CHRONIC OBSTRUCTIVE PULMONARY DISEASE
     Dosage: 160MCG/4.5MCG, 2 PUFFS, TWICE DAILY
     Route: 055
     Dates: start: 2008
  3. IPRATROPIOUM BROMIDE/ALBUTEROL SULPHATE [Concomitant]
     Indication: CHEST PAIN
     Dosage: AS REQUIRED
     Route: 055
  4. IPRATROPIOUM BROMIDE/ALBUTEROL SULPHATE [Concomitant]
     Indication: DYSPNOEA
     Dosage: AS REQUIRED
     Route: 055

REACTIONS (6)
  - Device malfunction [Unknown]
  - Intentional product misuse [Recovered/Resolved]
  - Product use issue [Unknown]
  - Dyspnoea [Recovered/Resolved]
  - Chest discomfort [Unknown]
  - Wrong technique in product usage process [Unknown]

NARRATIVE: CASE EVENT DATE: 2008
